FAERS Safety Report 20052117 (Version 5)
Quarter: 2022Q1

REPORT INFORMATION
  Report Type: Report from Study
  Country: BR (occurrence: BR)
  Receive Date: 20211110
  Receipt Date: 20220207
  Transmission Date: 20220423
  Serious: Yes (Hospitalization)
  Sender: FDA-Public Use
  Company Number: BR-TAKEDA-2021TUS068513

PATIENT
  Age: 71 Year
  Sex: Female

DRUGS (38)
  1. IMATINIB [Suspect]
     Active Substance: IMATINIB
     Indication: Philadelphia positive acute lymphocytic leukaemia
     Dosage: 600 MILLIGRAM, QD
     Route: 048
     Dates: start: 20211007, end: 20211012
  2. IMATINIB [Suspect]
     Active Substance: IMATINIB
     Dosage: 400 MILLIGRAM, QD
     Route: 048
     Dates: start: 20211019
  3. METHOTREXATE [Suspect]
     Active Substance: METHOTREXATE
     Indication: Philadelphia positive acute lymphocytic leukaemia
     Dosage: 15 MILLIGRAM
     Route: 037
     Dates: start: 20211007
  4. CYTARABINE [Suspect]
     Active Substance: CYTARABINE
     Indication: Philadelphia positive acute lymphocytic leukaemia
     Dosage: 40 MILLIGRAM
     Route: 037
     Dates: start: 20211007
  5. DEXAMETHASONE [Suspect]
     Active Substance: DEXAMETHASONE
     Indication: Philadelphia positive acute lymphocytic leukaemia
     Dosage: 4 MILLIGRAM
     Route: 037
     Dates: start: 20211007
  6. VINCRISTINE [Suspect]
     Active Substance: VINCRISTINE
     Indication: Philadelphia positive acute lymphocytic leukaemia
     Dosage: 1.4 MILLIGRAM/SQ. METER
     Route: 042
     Dates: start: 20211007
  7. DEXAMETHASONE [Suspect]
     Active Substance: DEXAMETHASONE
     Indication: Philadelphia positive acute lymphocytic leukaemia
     Dosage: 20 MILLIGRAM
     Route: 048
     Dates: start: 20211007
  8. LOSARTAN [Concomitant]
     Active Substance: LOSARTAN
     Indication: Hypertension
     Dosage: 50 MILLIGRAM, QD
     Route: 048
     Dates: start: 2006
  9. LOSARTAN [Concomitant]
     Active Substance: LOSARTAN
     Dosage: 50 MILLIGRAM, QD
     Route: 048
     Dates: start: 20211024, end: 20211028
  10. ACETAMINOPHEN\CODEINE PHOSPHATE [Concomitant]
     Active Substance: ACETAMINOPHEN\CODEINE PHOSPHATE
     Indication: Acute lymphocytic leukaemia
     Dosage: UNK UNK, TID
     Route: 048
     Dates: start: 202109
  11. DIPYRONE [Concomitant]
     Active Substance: DIPYRONE
     Indication: Acute lymphocytic leukaemia
     Dosage: 1000 MILLIGRAM, TID
     Route: 048
     Dates: start: 20211001
  12. BISACODYL [Concomitant]
     Active Substance: BISACODYL
     Indication: Constipation
     Dosage: 5 MILLIGRAM, QD
     Route: 048
     Dates: start: 20211005
  13. SYSTANE (HYPROMELLOSE 2910 (4000 MPA.S)) [Concomitant]
     Active Substance: HYPROMELLOSE 2910 (4000 MPA.S)
     Indication: Dry eye
     Dosage: UNK UNK, BID
     Route: 047
     Dates: start: 202105
  14. ACYCLOVIR [Concomitant]
     Active Substance: ACYCLOVIR
     Indication: Antiviral prophylaxis
     Dosage: 200 MILLIGRAM, QD
     Route: 048
     Dates: start: 20211013, end: 20211017
  15. ACYCLOVIR [Concomitant]
     Active Substance: ACYCLOVIR
     Dosage: 200 MILLIGRAM, TID
     Route: 048
     Dates: start: 20211018
  16. NYSTATIN [Concomitant]
     Active Substance: NYSTATIN
     Indication: Antifungal prophylaxis
     Dosage: 4 MILLILITER, TID
     Route: 048
     Dates: start: 20211013, end: 20211016
  17. NYSTATIN [Concomitant]
     Active Substance: NYSTATIN
     Indication: Mucosal inflammation
     Dosage: 4 MILLILITER, TID
     Route: 048
     Dates: start: 20211017, end: 20211020
  18. NYSTATIN [Concomitant]
     Active Substance: NYSTATIN
     Dosage: 5 MILLILITER, TID
     Route: 048
     Dates: start: 20211024
  19. SULFAMETHOXAZOLE AND TRIMETHOPRIM [Concomitant]
     Active Substance: SULFAMETHOXAZOLE\TRIMETHOPRIM
     Indication: Antifungal prophylaxis
     Dosage: 960 MILLIGRAM, 3/WEEK
     Route: 048
     Dates: start: 20211013
  20. ONDANSETRON [Concomitant]
     Active Substance: ONDANSETRON
     Indication: Nausea
     Dosage: 8 MILLIGRAM, TID
     Route: 048
     Dates: start: 20211008, end: 20211011
  21. ONDANSETRON [Concomitant]
     Active Substance: ONDANSETRON
     Indication: Vomiting
     Dosage: 4 MILLIGRAM, TID
     Route: 042
     Dates: start: 20211012, end: 20211015
  22. METOCLOPRAMIDE [Concomitant]
     Active Substance: METOCLOPRAMIDE
     Indication: Vomiting
     Dosage: 10 MILLIGRAM, TID
     Route: 048
     Dates: start: 20211008, end: 20211011
  23. METOCLOPRAMIDE [Concomitant]
     Active Substance: METOCLOPRAMIDE
     Indication: Nausea
     Dosage: 10 MILLIGRAM, Q6HR
     Route: 042
     Dates: start: 20211012, end: 20211018
  24. METOCLOPRAMIDE [Concomitant]
     Active Substance: METOCLOPRAMIDE
     Dosage: 10 MILLIGRAM, Q4HR
     Route: 042
     Dates: start: 20211022, end: 20211023
  25. DIMENHYDRINATE [Concomitant]
     Active Substance: DIMENHYDRINATE
     Indication: Vomiting
     Dosage: 30 MILLIGRAM, Q6HR
     Route: 042
     Dates: start: 20211012, end: 20211023
  26. SODIUM CHLORIDE [Concomitant]
     Active Substance: SODIUM CHLORIDE
     Indication: Tumour lysis syndrome
     Dosage: 500 MILLILITER, QD
     Route: 042
     Dates: start: 20211012, end: 20211012
  27. ALLOPURINOL [Concomitant]
     Active Substance: ALLOPURINOL
     Indication: Prophylaxis
     Dosage: 300 MILLIGRAM, QD
     Route: 048
     Dates: start: 20211007, end: 20211011
  28. ALLOPURINOL [Concomitant]
     Active Substance: ALLOPURINOL
     Dosage: 100 MILLIGRAM, QD
     Route: 048
     Dates: start: 20211012, end: 20211017
  29. ALLOPURINOL [Concomitant]
     Active Substance: ALLOPURINOL
     Dosage: 100 MILLIGRAM, TID
     Route: 048
     Dates: start: 20211018, end: 20211028
  30. LACTATED RINGERS SOLUTION [Concomitant]
     Active Substance: CALCIUM CHLORIDE\POTASSIUM CHLORIDE\SODIUM CHLORIDE\SODIUM LACTATE
     Indication: Tumour lysis syndrome
     Dosage: 500 MILLILITER
     Route: 042
     Dates: start: 20211013, end: 20211015
  31. DEXTROSE [Concomitant]
     Active Substance: DEXTROSE
     Indication: Tumour lysis syndrome
     Dosage: 60 MILLILITER
     Route: 042
     Dates: start: 20211015, end: 20211018
  32. SODIUM BICARBONATE [Concomitant]
     Active Substance: SODIUM BICARBONATE
     Indication: Tumour lysis syndrome
     Dosage: 500 MILLIGRAM, TID
     Route: 048
     Dates: start: 20211014, end: 20211016
  33. TRAMADOL [Concomitant]
     Active Substance: TRAMADOL
     Indication: Pain
     Dosage: 100 MILLIGRAM, TID
     Route: 042
     Dates: start: 20211012, end: 20211022
  34. POTASSIUM CHLORIDE [Concomitant]
     Active Substance: POTASSIUM CHLORIDE
     Indication: Hypocalcaemia
     Dosage: 600 MILLIGRAM, TID
     Route: 048
     Dates: start: 20211021, end: 20211023
  35. FILGRASTIM [Concomitant]
     Active Substance: FILGRASTIM
     Indication: Neutropenia
     Dosage: 300 MILLIGRAM, QD
     Route: 042
     Dates: start: 20211018, end: 20211023
  36. DEXPANTHENOL [Concomitant]
     Active Substance: DEXPANTHENOL
     Indication: Prophylaxis
     Dosage: 50 MILLIGRAM, TID
     Route: 061
     Dates: start: 20211013, end: 20211023
  37. DEXCHLORPHENIRAMINE [Concomitant]
     Active Substance: DEXCHLORPHENIRAMINE
     Indication: Prophylaxis
     Dosage: 2 MILLIGRAM, QD
     Route: 048
     Dates: start: 20211013, end: 20211023
  38. ACETAMINOPHEN [Concomitant]
     Active Substance: ACETAMINOPHEN
     Indication: Prophylaxis
     Dosage: 500 MILLIGRAM, QD
     Route: 048
     Dates: start: 20211013, end: 20211023

REACTIONS (1)
  - Sepsis [Recovered/Resolved]

NARRATIVE: CASE EVENT DATE: 20211029
